FAERS Safety Report 4334414-5 (Version None)
Quarter: 2004Q1

REPORT INFORMATION
  Report Type: 
  Country: None (occurrence: None)
  Receive Date: 20040325
  Receipt Date: 20040105
  Transmission Date: 20041129
  Serious: No
  Sender: FDA-Public Use
  Company Number: USA040155827

PATIENT
  Age: 90 Year
  Sex: Female
  Weight: 61 kg

DRUGS (4)
  1. FORTEO [Suspect]
     Indication: OSTEOPOROSIS
     Dates: start: 20030601
  2. EVISTA [Suspect]
     Indication: OSTEOPOROSIS
     Dates: start: 20030601
  3. MIACALCIN [Concomitant]
  4. NORCO [Concomitant]

REACTIONS (2)
  - DIZZINESS [None]
  - FALL [None]
